FAERS Safety Report 4542826-X (Version None)
Quarter: 2004Q4

REPORT INFORMATION
  Report Type: 
  Country: None (occurrence: None)
  Receive Date: 20041229
  Receipt Date: 20041222
  Transmission Date: 20050328
  Serious: Yes (Life-Threatening, Hospitalization)
  Sender: FDA-Public Use
  Company Number: F01200404004

PATIENT
  Age: 74 Year
  Sex: Male
  Weight: 68 kg

DRUGS (6)
  1. OXALIPLATIN - SOLUTION - 85 MG/M2 [Suspect]
     Indication: COLORECTAL CANCER METASTATIC
     Dosage: 85 MG/M2 Q2W - INTRAVENOUS NOS
     Route: 042
     Dates: start: 20031217, end: 20031217
  2. FLUOROURACIL [Suspect]
     Dosage: 400 MG/M2 IV BOLUS AND 600MG/M2 IV CONTINUOUS INFUSION, Q2W - INTRAVENOUS NOS
     Route: 042
     Dates: start: 20031217, end: 20031217
  3. LEUCOVORIN CALCIUM [Suspect]
     Dosage: 200 MG/M2 Q2W - INTRAVENOUS NOS
     Route: 042
     Dates: start: 20031217, end: 20031217
  4. CELECOXIB [Concomitant]
  5. NAPROXEN SODIUM [Concomitant]
  6. PARACETAMOL/PROPOXYPHENE NAPSYLATE [Concomitant]

REACTIONS (6)
  - CREATININE RENAL CLEARANCE DECREASED [None]
  - DIARRHOEA [None]
  - FEBRILE NEUTROPENIA [None]
  - HYPOKALAEMIA [None]
  - HYPONATRAEMIA [None]
  - HYPOVOLAEMIA [None]
